FAERS Safety Report 8168251-0 (Version None)
Quarter: 2012Q1

REPORT INFORMATION
  Report Type: 
  Country: None (occurrence: None)
  Receive Date: 20120227
  Receipt Date: 20120222
  Transmission Date: 20120608
  Serious: Yes (Life-Threatening, Hospitalization, Other)
  Sender: FDA-Public Use
  Company Number: PHHY2011US10440

PATIENT
  Sex: Female

DRUGS (4)
  1. NEORAL [Suspect]
     Indication: RENAL TRANSPLANT
     Dosage: 150 MG, BID
     Route: 048
  2. NEORAL [Suspect]
     Dosage: 100 MG, BID
     Route: 048
  3. REGLAN [Concomitant]
  4. NEORAL [Suspect]
     Dosage: 175 MG, BID
     Route: 048
     Dates: start: 20030728

REACTIONS (3)
  - DRUG HYPERSENSITIVITY [None]
  - PARAPLEGIA [None]
  - NEUROLEPTIC MALIGNANT SYNDROME [None]
